FAERS Safety Report 10356272 (Version 1)
Quarter: 2014Q3

REPORT INFORMATION
  Report Type: Report from Study
  Country: FR (occurrence: FR)
  Receive Date: 20140801
  Receipt Date: 20140801
  Transmission Date: 20150326
  Serious: Yes (Hospitalization, Other)
  Sender: FDA-Public Use
  Company Number: FR-ROCHE-1442297

PATIENT
  Sex: Female

DRUGS (16)
  1. RITUXIMAB [Concomitant]
     Active Substance: RITUXIMAB
     Route: 065
  2. TOCILIZUMAB [Suspect]
     Active Substance: TOCILIZUMAB
     Indication: RHEUMATOID ARTHRITIS
     Dosage: 8 MG/KG
     Route: 042
     Dates: start: 20120328
  3. TOCILIZUMAB [Suspect]
     Active Substance: TOCILIZUMAB
     Dosage: DOSE= 8MG/KG
     Route: 042
     Dates: start: 20120507
  4. CORTANCYL [Concomitant]
     Active Substance: PREDNISONE
     Route: 065
  5. METHOTREXATE [Concomitant]
     Active Substance: METHOTREXATE
  6. MIANSERINE [Concomitant]
     Active Substance: MIANSERIN HYDROCHLORIDE
     Dosage: 1/2DF DAILY
     Route: 065
  7. ZOLPIDEM [Concomitant]
     Active Substance: ZOLPIDEM\ZOLPIDEM TARTRATE
     Route: 065
  8. CORTANCYL [Concomitant]
     Active Substance: PREDNISONE
     Route: 065
  9. DUPHALAC [Concomitant]
     Active Substance: LACTULOSE
     Route: 065
  10. CALCIDOSE VITAMINE D [Concomitant]
     Active Substance: CALCIUM\CHOLECALCIFEROL
     Route: 065
  11. CORTANCYL [Concomitant]
     Active Substance: PREDNISONE
     Route: 065
  12. LEVOTHYROX [Concomitant]
     Active Substance: LEVOTHYROXINE
     Dosage: 1/2 DF
     Route: 065
  13. LEXOMIL [Concomitant]
     Active Substance: BROMAZEPAM
     Route: 065
  14. PROZAC [Concomitant]
     Active Substance: FLUOXETINE HYDROCHLORIDE
     Route: 065
  15. VOLTARENE [Concomitant]
     Active Substance: DICLOFENAC SODIUM
     Dosage: 1 APPLICATION DAILY
     Route: 065
  16. INEXIUM [Concomitant]
     Active Substance: ESOMEPRAZOLE
     Route: 065

REACTIONS (3)
  - Rheumatoid arthritis [Recovered/Resolved with Sequelae]
  - Back pain [Recovered/Resolved]
  - Diverticulitis [Recovered/Resolved]

NARRATIVE: CASE EVENT DATE: 20120413
